FAERS Safety Report 7985212-2 (Version None)
Quarter: 2011Q4

REPORT INFORMATION
  Report Type: 
  Country: None (occurrence: None)
  Receive Date: 20111213
  Receipt Date: 20111206
  Transmission Date: 20120403
  Serious: Yes (Death)
  Sender: FDA-Public Use
  Company Number: ACO_27367_2011

PATIENT
  Age: 57 Year
  Sex: Female
  Weight: 45.4 kg

DRUGS (3)
  1. AMPYRA [Suspect]
     Indication: GAIT DISTURBANCE
     Dosage: 10 MG, QD, ORAL
     Route: 048
     Dates: start: 20110501, end: 20110101
  2. EFFEXOR [Concomitant]
  3. NEURONTIN [Concomitant]

REACTIONS (1)
  - INAPPROPRIATE SCHEDULE OF DRUG ADMINISTRATION [None]
